FAERS Safety Report 10157676 (Version 1)
Quarter: 2014Q2

REPORT INFORMATION
  Report Type: Spontaneous
  Country: US (occurrence: US)
  Receive Date: 20140507
  Receipt Date: 20140507
  Transmission Date: 20141212
  Serious: Yes (Other)
  Sender: FDA-Public Use
  Company Number: CHPA2014US006143

PATIENT
  Age: 75 Year
  Sex: Female

DRUGS (1)
  1. PREVACID 24HR 15MG [Suspect]
     Dosage: 1 DF, QD
     Route: 048

REACTIONS (1)
  - Urinary tract infection [Recovered/Resolved]
